FAERS Safety Report 9511889 (Version 1)
Quarter: 2013Q1

REPORT INFORMATION
  Report Type: Spontaneous
  Country: US (occurrence: None)
  Receive Date: 20130305
  Receipt Date: 20130305
  Transmission Date: 20140127
  Serious: Yes (Hospitalization)
  Sender: FDA-Public Use
  Company Number: 163-21880-12051724

PATIENT
  Sex: Female

DRUGS (3)
  1. REVLIMID [Suspect]
     Indication: MYELODYSPLASTIC SYNDROME
     Dosage: 10 MG, 1 IN 1 D, PO
     Route: 048
     Dates: start: 20120327, end: 20120416
  2. LUPRON (LEUPRORELIN ACETATE) (UNKNOWN) [Concomitant]
  3. NEUPOGEN (FILGRASTIM) (UNKNOWN) [Concomitant]

REACTIONS (2)
  - Anaemia [None]
  - Dyspnoea [None]
